FAERS Safety Report 13571402 (Version 1)
Quarter: 2017Q2

REPORT INFORMATION
  Report Type: Spontaneous
  Country: US (occurrence: US)
  Receive Date: 20170523
  Receipt Date: 20170523
  Transmission Date: 20170830
  Serious: No
  Sender: FDA-Public Use
  Company Number: US-CONCORDIA PHARMACEUTICALS INC.-GSH201610-005060

PATIENT
  Sex: Female

DRUGS (1)
  1. ZONEGRAN [Suspect]
     Active Substance: ZONISAMIDE

REACTIONS (5)
  - Dysgeusia [Unknown]
  - Dizziness [Unknown]
  - Reaction to drug excipients [Unknown]
  - Gingival pain [Unknown]
  - Glossitis [Unknown]
